FAERS Safety Report 7000986-5 (Version None)
Quarter: 2010Q3

REPORT INFORMATION
  Report Type: 
  Country: None (occurrence: None)
  Receive Date: 20100920
  Receipt Date: 20100326
  Transmission Date: 20110219
  Serious: Yes (Other)
  Sender: FDA-Public Use
  Company Number: US-ASTRAZENECA-2010SE05208

PATIENT
  Age: 19784 Day
  Sex: Female
  Weight: 84.4 kg

DRUGS (4)
  1. SEROQUEL XR [Suspect]
     Route: 048
  2. SEROQUEL XR [Suspect]
     Route: 048
     Dates: start: 20100118, end: 20100215
  3. SEROQUEL XR [Suspect]
     Route: 048
  4. DEPAKOTE [Concomitant]
     Route: 065

REACTIONS (1)
  - AKATHISIA [None]
